FAERS Safety Report 4619039-6 (Version None)
Quarter: 2005Q1

REPORT INFORMATION
  Report Type: 
  Country: None (occurrence: None)
  Receive Date: 20050325
  Receipt Date: 20050315
  Transmission Date: 20050727
  Serious: Yes (Hospitalization)
  Sender: FDA-Public Use
  Company Number: FR-BRISTOL-MYERS SQUIBB COMPANY-12901088

PATIENT
  Age: 53 Year
  Sex: Female
  Weight: 59 kg

DRUGS (8)
  1. ELISOR [Suspect]
     Indication: HYPERCHOLESTEROLAEMIA
     Route: 048
     Dates: start: 20050124, end: 20050203
  2. PREVISCAN [Concomitant]
     Dates: start: 20050131
  3. COVERSYL [Concomitant]
     Dates: start: 20050129
  4. PARACETAMOL [Concomitant]
  5. CELECTOL [Concomitant]
  6. OESTRODOSE [Concomitant]
     Route: 062
  7. LUTENYL [Concomitant]
  8. FRAXIPARINE [Concomitant]
     Dates: start: 20050122, end: 20050131

REACTIONS (3)
  - BLOOD ALKALINE PHOSPHATASE INCREASED [None]
  - GAMMA-GLUTAMYLTRANSFERASE INCREASED [None]
  - HEPATIC ENZYME INCREASED [None]
